FAERS Safety Report 7183322-3 (Version None)
Quarter: 2010Q4

REPORT INFORMATION
  Report Type: 
  Country: None (occurrence: None)
  Receive Date: 20101222
  Receipt Date: 20101022
  Transmission Date: 20110411
  Serious: Yes (Other)
  Sender: FDA-Public Use
  Company Number: A0888308A

PATIENT
  Age: 70 Year
  Sex: Female

DRUGS (1)
  1. FLUTICASONE PROPIONATE [Suspect]
     Route: 045
     Dates: start: 20101015, end: 20101022

REACTIONS (2)
  - AGEUSIA [None]
  - ANOSMIA [None]
